FAERS Safety Report 19701295 (Version 4)
Quarter: 2021Q3

REPORT INFORMATION
  Report Type: Spontaneous
  Country: GB (occurrence: GB)
  Receive Date: 20210814
  Receipt Date: 20210930
  Transmission Date: 20211014
  Serious: Yes (Hospitalization, Other)
  Sender: FDA-Public Use
  Company Number: GB-TEVA-2021-GB-1941401

PATIENT
  Age: 52 Year
  Sex: Female
  Weight: 101 kg

DRUGS (28)
  1. DOXORUBICIN [Suspect]
     Active Substance: DOXORUBICIN
     Indication: DIFFUSE LARGE B-CELL LYMPHOMA STAGE IV
     Route: 042
     Dates: start: 20210721, end: 20210811
  2. DUOBODY?CD3XCD20 [Suspect]
     Active Substance: EPCORITAMAB
     Indication: DIFFUSE LARGE B-CELL LYMPHOMA STAGE IV
     Dosage: PRIMING DOSE:0.16 MG, SINGLE
     Route: 058
     Dates: start: 20210722, end: 20210811
  3. PREDNISOLONE. [Concomitant]
     Active Substance: PREDNISOLONE
     Dates: start: 20210811, end: 20210815
  4. PARACETAMOL [Concomitant]
     Active Substance: ACETAMINOPHEN
     Route: 048
     Dates: start: 20210811
  5. DUOBODY?CD3XCD20 [Suspect]
     Active Substance: EPCORITAMAB
     Dosage: 2 DOSES OF?EPCORITAMAB WITH THE LATEST DOSE
     Route: 058
     Dates: start: 20210811
  6. RITUXIMAB. [Suspect]
     Active Substance: RITUXIMAB
     Indication: DIFFUSE LARGE B-CELL LYMPHOMA STAGE IV
     Dosage: SINGLE
     Route: 042
     Dates: start: 20210721, end: 20210811
  7. CHLORPHENAMINE [Concomitant]
     Active Substance: CHLORPHENIRAMINE MALEATE
     Route: 042
     Dates: start: 20210722, end: 20210811
  8. METOCLOPRAMIDE. [Concomitant]
     Active Substance: METOCLOPRAMIDE
     Dosage: ONGOING
     Route: 065
     Dates: start: 20210721
  9. PREDNISONE. [Suspect]
     Active Substance: PREDNISONE
     Indication: DIFFUSE LARGE B-CELL LYMPHOMA STAGE IV
     Dosage: 100 MILLIGRAM DAILY;
     Route: 048
     Dates: start: 20210811, end: 20210815
  10. PREDNISOLONE. [Concomitant]
     Active Substance: PREDNISOLONE
     Dates: start: 20210721, end: 20210906
  11. PREDNISONE. [Suspect]
     Active Substance: PREDNISONE
     Dosage: 100 MILLIGRAM DAILY;
     Route: 048
     Dates: start: 20210721, end: 20210725
  12. NIVESTIM [Concomitant]
     Active Substance: FILGRASTIM
     Dates: start: 20210818
  13. CHLORPHENAMINE [Concomitant]
     Active Substance: CHLORPHENIRAMINE MALEATE
     Route: 042
     Dates: start: 20210811
  14. COTRIMOXAZOLE [Concomitant]
     Active Substance: SULFAMETHOXAZOLE\TRIMETHOPRIM
     Route: 065
     Dates: start: 20210721
  15. CYCLOPHOSPHAMIDE. [Suspect]
     Active Substance: CYCLOPHOSPHAMIDE
     Indication: DIFFUSE LARGE B-CELL LYMPHOMA STAGE IV
     Dosage: SINGLE
     Route: 042
     Dates: start: 20210721, end: 20210811
  16. ACICLOVIR [Concomitant]
     Active Substance: ACYCLOVIR
     Dosage: ONGOING
     Route: 065
     Dates: start: 20210723
  17. CODEINE [Concomitant]
     Active Substance: CODEINE
     Dosage: ONGOING
     Route: 065
     Dates: start: 20210721
  18. LANSOPRAZOLE. [Concomitant]
     Active Substance: LANSOPRAZOLE
     Dosage: ONGOING
     Route: 065
     Dates: start: 202106
  19. ONDANSETRON [Concomitant]
     Active Substance: ONDANSETRON
     Dates: start: 20210721, end: 20210813
  20. PARACETAMOL [Concomitant]
     Active Substance: ACETAMINOPHEN
     Route: 048
     Dates: start: 20210722, end: 20210811
  21. CYCLIZINE [Concomitant]
     Active Substance: CYCLIZINE
     Dosage: ONGOING
     Dates: start: 20210824
  22. SENNA [Concomitant]
     Active Substance: SENNA LEAF\SENNOSIDES\SENNOSIDES A AND B
     Dosage: ONGOING
     Dates: start: 20210818
  23. VINCRISTINE [Suspect]
     Active Substance: VINCRISTINE
     Indication: DIFFUSE LARGE B-CELL LYMPHOMA STAGE IV
     Dosage: SINGLE
     Route: 042
     Dates: start: 20210721, end: 20210811
  24. DUOBODY?CD3XCD20 [Suspect]
     Active Substance: EPCORITAMAB
     Dosage: RE?PRIMED WITH EPCORITAMAB
     Dates: start: 20210902
  25. ONDANSETRON [Concomitant]
     Active Substance: ONDANSETRON
     Dates: start: 20210813
  26. RASBURICASE [Concomitant]
     Active Substance: RASBURICASE
     Dates: start: 20210721, end: 20210722
  27. NIVESTIM [Concomitant]
     Active Substance: FILGRASTIM
     Route: 065
     Dates: start: 20210812, end: 20210818
  28. FLUCONAZOLE. [Concomitant]
     Active Substance: FLUCONAZOLE
     Dosage: ONGOING
     Route: 065
     Dates: start: 20210721

REACTIONS (1)
  - Febrile neutropenia [Recovered/Resolved]

NARRATIVE: CASE EVENT DATE: 20210819
